FAERS Safety Report 10242583 (Version 1)
Quarter: 2014Q2

REPORT INFORMATION
  Report Type: Spontaneous
  Country: IT (occurrence: IT)
  Receive Date: 20140617
  Receipt Date: 20140617
  Transmission Date: 20141212
  Serious: Yes (Other)
  Sender: FDA-Public Use
  Company Number: PHHY2014IT070989

PATIENT
  Age: 34 Year
  Sex: Male

DRUGS (2)
  1. TOPIRAMATE [Suspect]
     Indication: TEMPORAL LOBE EPILEPSY
     Dosage: 250 MG, PER DAY
  2. TOPIRAMATE [Suspect]
     Dosage: 50 MG, PER DAY

REACTIONS (5)
  - Periodic limb movement disorder [Recovering/Resolving]
  - Sleep disorder [Recovering/Resolving]
  - Insomnia [Recovering/Resolving]
  - Somnolence [Recovering/Resolving]
  - Sleep study abnormal [Recovering/Resolving]
